FAERS Safety Report 12912702 (Version 3)
Quarter: 2016Q4

REPORT INFORMATION
  Report Type: Report from Study
  Country: JP (occurrence: JP)
  Receive Date: 20161104
  Receipt Date: 20161229
  Transmission Date: 20170207
  Serious: Yes (Death, Life-Threatening, Other)
  Sender: FDA-Public Use
  Company Number: JP-BRISTOL-MYERS SQUIBB COMPANY-BMS-2016-092472

PATIENT
  Age: 64 Year
  Sex: Male

DRUGS (9)
  1. NIVOLUMAB [Suspect]
     Active Substance: NIVOLUMAB
     Indication: PRODUCT USED FOR UNKNOWN INDICATION
     Dosage: 3 MG/KG, QD
     Route: 041
     Dates: start: 20160406, end: 20160406
  2. EPERISONE HYDROCHLORIDE [Concomitant]
     Active Substance: EPERISONE HYDROCHLORIDE
     Indication: PRODUCT USED FOR UNKNOWN INDICATION
     Dosage: UNK
     Route: 065
  3. METHYCOBIDE [Concomitant]
     Indication: PRODUCT USED FOR UNKNOWN INDICATION
     Dosage: UNK
     Route: 065
  4. NIVOLUMAB [Suspect]
     Active Substance: NIVOLUMAB
     Indication: PRODUCT USED FOR UNKNOWN INDICATION
     Dosage: 3 MG/KG, QD
     Route: 041
     Dates: start: 20160420, end: 20160420
  5. GOSHAJINKIGAN [Concomitant]
     Active Substance: HERBALS
     Indication: PRODUCT USED FOR UNKNOWN INDICATION
     Dosage: UNK
     Route: 065
  6. NIVOLUMAB [Suspect]
     Active Substance: NIVOLUMAB
     Indication: NON-SMALL CELL LUNG CANCER RECURRENT
     Dosage: 3 MG/KG, QD
     Route: 041
     Dates: start: 20160323, end: 20160323
  7. CELECOX [Concomitant]
     Active Substance: CELECOXIB
     Indication: PRODUCT USED FOR UNKNOWN INDICATION
     Dosage: UNK
     Route: 065
  8. OSIMERTINIB [Suspect]
     Active Substance: OSIMERTINIB
     Indication: NON-SMALL CELL LUNG CANCER RECURRENT
     Dosage: 80 MG, UNK
     Route: 048
     Dates: start: 20160614, end: 20160614
  9. LANSOPRAZOLE. [Concomitant]
     Active Substance: LANSOPRAZOLE
     Indication: PRODUCT USED FOR UNKNOWN INDICATION
     Dosage: UNK
     Route: 065

REACTIONS (6)
  - Thoracostomy [Unknown]
  - Hepatic function abnormal [Recovered/Resolved]
  - Pneumothorax [Fatal]
  - Malignant neoplasm progression [Fatal]
  - Interstitial lung disease [Not Recovered/Not Resolved]
  - Hypothyroidism [Not Recovered/Not Resolved]

NARRATIVE: CASE EVENT DATE: 20160609
